FAERS Safety Report 17040182 (Version 1)
Quarter: 2019Q4

REPORT INFORMATION
  Report Type: Spontaneous
  Country: US (occurrence: US)
  Receive Date: 20191116
  Receipt Date: 20191116
  Transmission Date: 20200122
  Serious: No
  Sender: FDA-Public Use
  Company Number: US-TORRENT-00008657

PATIENT
  Sex: Female
  Weight: 63 kg

DRUGS (3)
  1. CHLORTHALIDONE. [Concomitant]
     Active Substance: CHLORTHALIDONE
     Indication: HYPERTENSION
  2. IC POTASSIUM CL ER 10 MEQ [Concomitant]
     Indication: BLOOD POTASSIUM DECREASED
     Dosage: EXTENDED-RELEASE
  3. LOSARTAN POTASSIUM. [Suspect]
     Active Substance: LOSARTAN POTASSIUM
     Indication: HYPERTENSION
     Dosage: 7-8 MONTHS AGO
     Dates: start: 2018

REACTIONS (3)
  - Facial pain [Unknown]
  - Neck pain [Unknown]
  - Headache [Unknown]
